FAERS Safety Report 6307583-5 (Version None)
Quarter: 2009Q3

REPORT INFORMATION
  Report Type: 
  Country: None (occurrence: None)
  Receive Date: 20090813
  Receipt Date: 20070420
  Transmission Date: 20100115
  Serious: Yes (Other)
  Sender: FDA-Public Use
  Company Number: US-ASTRAZENECA-2006UW23588

PATIENT
  Age: 17894 Day
  Sex: Female
  Weight: 95.3 kg

DRUGS (33)
  1. SEROQUEL [Suspect]
     Indication: BIPOLAR DISORDER
     Dosage: STRENGTH: 100 MG, 150 MG, 200 MG, 300 MG, 600 MG DOSE: 200 MG TO 600 MG DAILY
     Route: 048
     Dates: start: 20020204
  2. SEROQUEL [Suspect]
     Indication: MANIA
     Dosage: STRENGTH: 100 MG, 150 MG, 200 MG, 300 MG, 600 MG DOSE: 200 MG TO 600 MG DAILY
     Route: 048
     Dates: start: 20020204
  3. SEROQUEL [Suspect]
     Route: 048
  4. SEROQUEL [Suspect]
     Route: 048
  5. RISPERDAL [Concomitant]
     Dosage: STRENGTH: 1 MG, 2 MG, 3 MG DOSE: 2 MG TO 3 MG DAILY
     Route: 048
     Dates: start: 20011211
  6. RISPERDAL [Concomitant]
     Route: 030
     Dates: start: 20070516
  7. RISPERDAL [Concomitant]
  8. ZYPREXA [Concomitant]
     Route: 048
     Dates: start: 19970819
  9. ZYPREXA [Concomitant]
  10. CARBAMAZEPINE [Concomitant]
     Dosage: STRENGTH: 100 MG, 200 MG DOSE: 200 MG TO 400 MG
     Route: 048
     Dates: start: 20020204
  11. PROLIXIN DECANOATE [Concomitant]
     Dosage: 12.5 MG BOOSTER, 25 MG, 37.5 MG EVERY TWO WEEKS
     Route: 030
     Dates: start: 20020204
  12. HALDOL [Concomitant]
     Indication: AGITATION
     Dosage: STRENGTH: 5 MG DOSE: EVERY THREE HOURS AS REQUIRED
     Route: 030
     Dates: start: 20000223
  13. HALDOL [Concomitant]
     Dosage: STRENGTH: 5 MG DOSE: EVERY THREE HOURS AS REQUIRED
     Route: 048
     Dates: start: 20000223
  14. GEODON [Concomitant]
     Route: 048
     Dates: start: 20070516
  15. LAMICTAL [Concomitant]
     Dates: start: 20070516
  16. PLENDIL [Concomitant]
     Dates: start: 20070516
  17. GABAPENTIN [Concomitant]
     Dosage: STRENGTH: 300 MG DOSE: 300 MG TO 900 MG DAILY
     Route: 048
     Dates: start: 20060220
  18. AMITRIPTYLINE [Concomitant]
     Route: 048
     Dates: start: 20041230, end: 20060220
  19. LISINOPRIL [Concomitant]
     Indication: HYPERTENSION
     Route: 048
     Dates: start: 20060220
  20. LISINOPRIL [Concomitant]
     Indication: RENAL DISORDER
     Route: 048
     Dates: start: 20060220
  21. LORAZEPAM [Concomitant]
     Dosage: 1 MG EVERY EIGHT HOURS AS REQUIRED
     Route: 030
     Dates: start: 19970727
  22. LORAZEPAM [Concomitant]
     Dosage: 1 MG EVERY EIGHT HOURS AS REQUIRED
     Route: 048
     Dates: start: 19970727
  23. ZOLPIDEM TARTRATE [Concomitant]
     Indication: SLEEP DISORDER
     Dosage: 10 MG EVERY NIGHT AS REQUIRED
     Route: 048
     Dates: start: 20070516
  24. COGENTIN [Concomitant]
     Indication: EXTRAPYRAMIDAL DISORDER
     Dosage: 2 MG EVERY EIGHT HOURS AS REQUIRED
     Route: 048
     Dates: start: 20070516
  25. COGENTIN [Concomitant]
     Dosage: 2 MG EVERY EIGHT HOURS AS REQUIRED
     Route: 030
     Dates: start: 20070516
  26. OXCARBAZEPINE [Concomitant]
     Route: 048
     Dates: start: 20070516
  27. SIMVASTATIN [Concomitant]
     Route: 048
     Dates: start: 20070516
  28. BENAZEPRIL HYDROCHLORIDE [Concomitant]
     Route: 048
     Dates: start: 20030429
  29. CADUET [Concomitant]
     Indication: HYPERTENSION
     Dosage: STRENGTH: 5/20 MG DOSE: 5/20 MG DAILY
     Route: 048
     Dates: start: 20060220
  30. CADUET [Concomitant]
     Indication: BLOOD CHOLESTEROL INCREASED
     Dosage: STRENGTH: 5/20 MG DOSE: 5/20 MG DAILY
     Route: 048
     Dates: start: 20060220
  31. HYDROCHLOROTHIAC [Concomitant]
     Indication: HYPERTENSION
     Route: 048
     Dates: start: 20060220
  32. TEGRETOL [Concomitant]
     Dosage: STRENGTH: 100 MG, 200 MG DOSE: 200 MG TO 400 MG DAILY
     Dates: start: 20000303
  33. CLONAZEPAM [Concomitant]
     Indication: MANIA
     Dosage: STRENGTH: 1 MG, 0.5 MG DOSE: 1 MG TO 2 MG DAILY
     Route: 048
     Dates: start: 20020204

REACTIONS (2)
  - DIABETES MELLITUS [None]
  - DIABETIC NEUROPATHY [None]
